FAERS Safety Report 7502694-0 (Version None)
Quarter: 2011Q2

REPORT INFORMATION
  Report Type: 
  Country: None (occurrence: None)
  Receive Date: 20110525
  Receipt Date: 20110513
  Transmission Date: 20111010
  Serious: Yes (Hospitalization, Other)
  Sender: FDA-Public Use
  Company Number: PHHY2011FR42157

PATIENT
  Sex: Male

DRUGS (3)
  1. PULMICORT [Concomitant]
     Dosage: 200 UG, ONE PUFF DAILY
  2. DICLOFENAC SODIUM [Suspect]
     Indication: BURSITIS
     Dosage: 1 DF, BID
     Route: 048
     Dates: start: 20110414, end: 20110419
  3. ACETAMINOPHEN [Concomitant]
     Indication: PAIN
     Dosage: 1 DF, UNK
     Dates: start: 20010418, end: 20110418

REACTIONS (20)
  - TACHYCARDIA [None]
  - HAEMOGLOBIN DECREASED [None]
  - ILEITIS [None]
  - DIARRHOEA HAEMORRHAGIC [None]
  - ANAEMIA [None]
  - LYMPHADENOPATHY [None]
  - BLOOD ALBUMIN DECREASED [None]
  - ABDOMINAL PAIN [None]
  - C-REACTIVE PROTEIN INCREASED [None]
  - HAEMATOCRIT DECREASED [None]
  - RED BLOOD CELL COUNT DECREASED [None]
  - ASTHENIA [None]
  - STAPHYLOCOCCAL INFECTION [None]
  - NAUSEA [None]
  - DECREASED APPETITE [None]
  - PALLOR [None]
  - RECTAL HAEMORRHAGE [None]
  - COLITIS ULCERATIVE [None]
  - PROTEIN TOTAL DECREASED [None]
  - PYREXIA [None]
